FAERS Safety Report 5525903-6 (Version None)
Quarter: 2007Q4

REPORT INFORMATION
  Report Type: 
  Country: None (occurrence: None)
  Receive Date: 20071126
  Receipt Date: 20071114
  Transmission Date: 20080405
  Serious: Yes (Other)
  Sender: FDA-Public Use
  Company Number: JP-ASTRAZENECA-2007AP07293

PATIENT
  Age: 35 Year
  Sex: Female

DRUGS (1)
  1. NOLVADEX [Suspect]
     Indication: DESMOID TUMOUR
     Route: 048
     Dates: end: 20071012

REACTIONS (1)
  - OVARIAN NEOPLASM [None]
